FAERS Safety Report 19196591 (Version 2)
Quarter: 2021Q2

REPORT INFORMATION
  Report Type: Spontaneous
  Country: US (occurrence: US)
  Receive Date: 20210429
  Receipt Date: 20210621
  Transmission Date: 20210717
  Serious: Yes (Hospitalization)
  Sender: FDA-Public Use
  Company Number: US-TEVA-2021-US-1904650

PATIENT
  Age: 67 Year
  Sex: Female

DRUGS (10)
  1. HYDROXYCHLOROQUINE [Suspect]
     Active Substance: HYDROXYCHLOROQUINE
     Dosage: 400 MILLIGRAM DAILY;
     Route: 048
     Dates: start: 20200405, end: 20200406
  2. HYDROCORTISONE. [Suspect]
     Active Substance: HYDROCORTISONE
     Indication: VASOPRESSIVE THERAPY
     Dosage: 100 MILLIGRAM DAILY;
     Route: 042
     Dates: start: 20200408, end: 20200413
  3. THIAMINE. [Concomitant]
     Active Substance: THIAMINE
     Indication: PRODUCT USED FOR UNKNOWN INDICATION
     Dosage: 400 MILLIGRAM DAILY;
     Route: 065
     Dates: start: 20200408, end: 20200411
  4. NOREPINEPHRINE. [Suspect]
     Active Substance: NOREPINEPHRINE
     Indication: HYPOTENSION
     Dosage: LOW?DOSE?ADDITIONAL INFO: ROUTE: {INFUSION}
     Route: 050
     Dates: start: 20200404, end: 20200413
  5. HYDROXYCHLOROQUINE [Suspect]
     Active Substance: HYDROXYCHLOROQUINE
     Indication: COVID-19
     Dosage: 800 MILLIGRAM DAILY;
     Route: 048
     Dates: start: 20200404, end: 20200405
  6. DOXYCYCLINE. [Suspect]
     Active Substance: DOXYCYCLINE
     Indication: COVID-19
     Route: 065
     Dates: start: 20200404, end: 20200410
  7. TACROLIMUS. [Suspect]
     Active Substance: TACROLIMUS
     Indication: IMMUNOSUPPRESSANT DRUG THERAPY
     Dosage: 6 MILLIGRAM DAILY;
     Route: 065
  8. CEFTRIAXONE. [Suspect]
     Active Substance: CEFTRIAXONE
     Indication: COVID-19
     Dosage: 1 GRAM DAILY;
     Route: 042
     Dates: start: 20200404, end: 20200410
  9. TACROLIMUS. [Suspect]
     Active Substance: TACROLIMUS
     Dosage: THERAPY RESTARTED WHEN TACROLIMUS LEVEL WAS {5.0 NG/ML
     Route: 065
     Dates: start: 20200407, end: 20200508
  10. ASCORBIC ACID. [Concomitant]
     Active Substance: ASCORBIC ACID
     Indication: PRODUCT USED FOR UNKNOWN INDICATION
     Dosage: 6000 MILLIGRAM DAILY;
     Route: 042
     Dates: start: 20200408, end: 20200411

REACTIONS (2)
  - Off label use [Unknown]
  - Renal tubular necrosis [Recovering/Resolving]

NARRATIVE: CASE EVENT DATE: 202004
